FAERS Safety Report 18118519 (Version 6)
Quarter: 2024Q4

REPORT INFORMATION
  Report Type: Other
  Country: CA (occurrence: CA)
  Receive Date: 20200806
  Receipt Date: 20241227
  Transmission Date: 20250115
  Serious: Yes (Other)
  Sender: APOTEX
  Company Number: CA-APOTEX-2020AP014978

PATIENT
  Age: 74 Year
  Sex: Male

DRUGS (18)
  1. PREDNISONE [Suspect]
     Active Substance: PREDNISONE
     Indication: Asthma
     Dosage: 50 MILLIGRAM
     Route: 065
  2. ALBUTEROL [Suspect]
     Active Substance: ALBUTEROL
     Indication: Asthma
     Dosage: 100 MICROGRAM
     Route: 065
  3. BUDESONIDE [Suspect]
     Active Substance: BUDESONIDE
     Indication: Product used for unknown indication
     Dosage: 500 MICROGRAM
  4. FLOVENT [Suspect]
     Active Substance: FLUTICASONE PROPIONATE
     Indication: Asthma
     Dosage: UNK
  5. MEPOLIZUMAB [Suspect]
     Active Substance: MEPOLIZUMAB
     Indication: Product used for unknown indication
     Dosage: 100 MILLIGRAM
     Route: 042
  6. MEPOLIZUMAB [Suspect]
     Active Substance: MEPOLIZUMAB
     Indication: Asthma
  7. SINGULAIR [Suspect]
     Active Substance: MONTELUKAST SODIUM
     Indication: Asthma
     Dosage: 10 MILLIGRAM, QD
     Route: 065
  8. TIOTROPIUM [Suspect]
     Active Substance: TIOTROPIUM
     Indication: Product used for unknown indication
     Dosage: 2 DOSAGE FORM, QD
  9. TIOTROPIUM [Suspect]
     Active Substance: TIOTROPIUM
     Dosage: UNK
  10. ADVAIR HFA [Suspect]
     Active Substance: FLUTICASONE PROPIONATE\SALMETEROL XINAFOATE
     Indication: Asthma
     Dosage: 1 DOSAGE FORM, BID
  11. FLUTICASONE PROPIONATE\SALMETEROL XINAFOATE [Suspect]
     Active Substance: FLUTICASONE PROPIONATE\SALMETEROL XINAFOATE
     Indication: Asthma
     Dosage: 1 DOSAGE FORM, BID
  12. ALLOPURINOL [Concomitant]
     Active Substance: ALLOPURINOL
     Indication: Product used for unknown indication
     Dosage: 200 MILLIGRAM, QD
     Route: 065
  13. AMLODIPINE [Concomitant]
     Active Substance: AMLODIPINE BESYLATE
     Indication: Product used for unknown indication
     Dosage: 5 MILLIGRAM, QD
     Route: 065
  14. COLCHICINE [Concomitant]
     Active Substance: COLCHICINE
     Indication: Product used for unknown indication
     Dosage: UNK
     Route: 065
  15. PANTOPRAZOLE [Concomitant]
     Active Substance: PANTOPRAZOLE
     Indication: Product used for unknown indication
     Dosage: 40 MILLIGRAM, QD
     Route: 065
  16. PERCOCET [Concomitant]
     Active Substance: ACETAMINOPHEN\OXYCODONE HYDROCHLORIDE
     Indication: Product used for unknown indication
     Dosage: UNK
     Route: 065
  17. TELMISARTAN [Concomitant]
     Active Substance: TELMISARTAN
     Indication: Product used for unknown indication
     Dosage: 80 MILLIGRAM, QD
     Route: 065
  18. TRAMADOL HYDROCHLORIDE [Concomitant]
     Active Substance: TRAMADOL HYDROCHLORIDE
     Indication: Product used for unknown indication
     Dosage: UNK UNK, QD
     Route: 065

REACTIONS (11)
  - Arthralgia [Unknown]
  - Asthma [Unknown]
  - Chest X-ray abnormal [Unknown]
  - Dyspnoea [Unknown]
  - Eosinophilia [Unknown]
  - Lung diffusion test decreased [Unknown]
  - Tremor [Unknown]
  - Wheezing [Unknown]
  - Wrong technique in product usage process [Unknown]
  - Respiratory tract infection [Unknown]
  - Drug ineffective [Unknown]
